FAERS Safety Report 15525974 (Version 1)
Quarter: 2018Q4

REPORT INFORMATION
  Report Type: Spontaneous
  Country: US (occurrence: US)
  Receive Date: 20181018
  Receipt Date: 20181018
  Transmission Date: 20190205
  Serious: No
  Sender: FDA-Public Use
  Company Number: US-TEVA-2018-US-963412

PATIENT
  Sex: Female

DRUGS (1)
  1. LIDOCAINE PATCH 5% [Suspect]
     Active Substance: LIDOCAINE
     Indication: HERPES ZOSTER
     Route: 065
     Dates: start: 20181004

REACTIONS (5)
  - Hypersensitivity [Unknown]
  - Application site swelling [Unknown]
  - Application site pain [Unknown]
  - Maternal exposure during pregnancy [Unknown]
  - Application site erythema [Unknown]

NARRATIVE: CASE EVENT DATE: 20181005
